FAERS Safety Report 11616476 (Version 7)
Quarter: 2016Q2

REPORT INFORMATION
  Report Type: Spontaneous
  Country: US (occurrence: US)
  Receive Date: 20151009
  Receipt Date: 20160407
  Transmission Date: 20160815
  Serious: Yes (Other)
  Sender: FDA-Public Use
  Company Number: US-PFIZER INC-2015335580

PATIENT
  Age: 65 Year
  Sex: Female
  Weight: 59 kg

DRUGS (5)
  1. OXYCONTIN [Concomitant]
     Active Substance: OXYCODONE HYDROCHLORIDE
     Dosage: UNK
     Dates: start: 201503
  2. LYRICA [Suspect]
     Active Substance: PREGABALIN
     Indication: DIABETIC NEUROPATHY
     Dosage: 100 MG, 3X/DAY
  3. LYRICA [Suspect]
     Active Substance: PREGABALIN
     Indication: FIBROMYALGIA
     Dosage: 100 MG, 2X/DAY
     Dates: start: 1995, end: 201509
  4. LYRICA [Suspect]
     Active Substance: PREGABALIN
     Dosage: 225 MG, DAILY
  5. LYRICA [Suspect]
     Active Substance: PREGABALIN
     Dosage: 75 MG, UNK
     Dates: end: 201512

REACTIONS (13)
  - Diabetes mellitus [Not Recovered/Not Resolved]
  - Joint injury [Unknown]
  - Burning sensation [Not Recovered/Not Resolved]
  - Arthritis [Unknown]
  - Diabetic neuropathy [Not Recovered/Not Resolved]
  - Drug dose omission [Recovered/Resolved]
  - Limb discomfort [Recovered/Resolved]
  - Weight decreased [Recovered/Resolved]
  - Paraesthesia [Recovered/Resolved]
  - Drug ineffective [Recovered/Resolved]
  - Tooth loss [Not Recovered/Not Resolved]
  - Feeling abnormal [Recovered/Resolved]
  - Road traffic accident [Unknown]

NARRATIVE: CASE EVENT DATE: 2001
